FAERS Safety Report 9404340 (Version 1)
Quarter: 2013Q3

REPORT INFORMATION
  Report Type: Spontaneous
  Country: US (occurrence: None)
  Receive Date: 20130716
  Receipt Date: 20130716
  Transmission Date: 20140515
  Serious: Yes (Hospitalization)
  Sender: FDA-Public Use
  Company Number: None

PATIENT
  Age: 66 Year
  Sex: Female
  Weight: 94.8 kg

DRUGS (14)
  1. CARBOPLATIN [Suspect]
     Dates: end: 20130702
  2. PACLITAXEL (TAXOL) [Suspect]
     Dates: end: 20130702
  3. ADVAIR [Concomitant]
  4. ALBUTEROL [Concomitant]
  5. AMLODIPINE [Concomitant]
  6. ASPIRIN [Concomitant]
  7. BENZAPRIL [Concomitant]
  8. LASIX [Concomitant]
  9. OMEPRAZOLE [Concomitant]
  10. SERTRALINE [Concomitant]
  11. SIMVASTATIN [Concomitant]
  12. SPIRIVA [Concomitant]
  13. TRAVATAN EYE DROPS [Concomitant]
  14. ZOLPIDEM [Concomitant]

REACTIONS (3)
  - Dyspnoea [None]
  - Pulmonary embolism [None]
  - Haemodynamic instability [None]
